FAERS Safety Report 17169492 (Version 4)
Quarter: 2020Q1

REPORT INFORMATION
  Report Type: Report from Study
  Country: PA (occurrence: PA)
  Receive Date: 20191218
  Receipt Date: 20200217
  Transmission Date: 20200409
  Serious: Yes (Other)
  Sender: FDA-Public Use
  Company Number: NVSC2019PA064272

PATIENT
  Age: 45 Year
  Sex: Female
  Weight: 76 kg

DRUGS (4)
  1. FULVESTRANT. [Suspect]
     Active Substance: FULVESTRANT
     Indication: PRODUCT USED FOR UNKNOWN INDICATION
     Dosage: 500 MG, Q4W (EVERY 28 DAYS)
     Route: 030
  2. BYL719 [Suspect]
     Active Substance: ALPELISIB
     Indication: BREAST CANCER METASTATIC
     Dosage: 300 MG DAILY
     Route: 048
     Dates: start: 20191126
  3. BYL719 [Suspect]
     Active Substance: ALPELISIB
     Dosage: 50 MG
     Route: 065
  4. BYL719 [Suspect]
     Active Substance: ALPELISIB
     Dosage: 200 MG
     Route: 065

REACTIONS (2)
  - Hyperglycaemia [Unknown]
  - Hyperglycaemia [Recovered/Resolved]

NARRATIVE: CASE EVENT DATE: 20191203
